FAERS Safety Report 4892629-1 (Version None)
Quarter: 2006Q1

REPORT INFORMATION
  Report Type: 
  Country: None (occurrence: None)
  Receive Date: 20060126
  Receipt Date: 20060125
  Transmission Date: 20060701
  Serious: Yes (Other)
  Sender: FDA-Public Use
  Company Number: 200610356EU

PATIENT

DRUGS (1)
  1. NICORETTE [Suspect]
     Dosage: 2MG WEEKLY
     Route: 002
     Dates: start: 20050801

REACTIONS (12)
  - AFFECT LABILITY [None]
  - DIZZINESS [None]
  - DRUG INEFFECTIVE [None]
  - ERYTHEMA [None]
  - HEADACHE [None]
  - HYPERSENSITIVITY [None]
  - MEDICATION ERROR [None]
  - OVERDOSE [None]
  - PRURITUS [None]
  - SLEEP DISORDER [None]
  - SYNCOPE [None]
  - VOMITING [None]
